FAERS Safety Report 7375419-X (Version None)
Quarter: 2011Q1

REPORT INFORMATION
  Report Type: 
  Country: None (occurrence: None)
  Receive Date: 20110325
  Receipt Date: 20110311
  Transmission Date: 20110831
  Serious: Yes (Other)
  Sender: FDA-Public Use
  Company Number: PHHO2011IE04678

PATIENT
  Sex: Male
  Weight: 92.2 kg

DRUGS (14)
  1. BLINDED ALISKIREN [Suspect]
     Indication: CARDIOVASCULAR DISORDER
     Dosage: NO TREATMENT
  2. BLINDED AMLODIPINE [Suspect]
     Indication: CARDIOVASCULAR DISORDER
     Dosage: NO TREATMENT
  3. TICLOPIDINE HCL [Concomitant]
  4. BLINDED ESIDREX K [Suspect]
     Indication: CARDIOVASCULAR DISORDER
     Dosage: NO TREATMENT
  5. ASPIRIN [Concomitant]
  6. ATORVASTATIN CALCIUM [Concomitant]
  7. CLOPIDOGREL [Concomitant]
  8. ALISKIREN [Suspect]
     Indication: CARDIOVASCULAR DISORDER
     Dosage: 300 MG, QD
     Route: 048
     Dates: end: 20110309
  9. ESIDRIX [Suspect]
     Indication: CARDIOVASCULAR DISORDER
     Dosage: 25 MG, QD
     Route: 048
     Dates: end: 20110309
  10. PERINDOPRIL [Concomitant]
  11. BLINDED NO TREATMENT RECEIVED [Suspect]
     Indication: CARDIOVASCULAR DISORDER
     Dosage: NO TREATMENT
  12. BLINDED PLACEBO [Suspect]
     Indication: CARDIOVASCULAR DISORDER
     Dosage: NO TREATMENT
  13. ATENOLOL [Concomitant]
  14. INSULIN [Concomitant]

REACTIONS (4)
  - DRUG INTOLERANCE [None]
  - DIZZINESS [None]
  - DIARRHOEA [None]
  - ABDOMINAL PAIN [None]
